FAERS Safety Report 25853993 (Version 1)
Quarter: 2025Q3

REPORT INFORMATION
  Report Type: Spontaneous
  Country: EU (occurrence: EU)
  Receive Date: 20250926
  Receipt Date: 20250926
  Transmission Date: 20251020
  Serious: Yes (Other)
  Sender: MYLAN
  Company Number: EU-Desitin-2025-02059

PATIENT
  Sex: Male

DRUGS (8)
  1. VALPROATE [Interacting]
     Active Substance: VALPROIC ACID
     Indication: Seizure
  2. VALPROATE [Interacting]
     Active Substance: VALPROIC ACID
     Route: 065
  3. VALPROATE [Interacting]
     Active Substance: VALPROIC ACID
     Route: 065
  4. VALPROATE [Interacting]
     Active Substance: VALPROIC ACID
  5. DOXYCYCLINE [Interacting]
     Active Substance: DOXYCYCLINE
     Indication: Pneumonia
  6. DOXYCYCLINE [Interacting]
     Active Substance: DOXYCYCLINE
     Route: 065
  7. DOXYCYCLINE [Interacting]
     Active Substance: DOXYCYCLINE
     Route: 065
  8. DOXYCYCLINE [Interacting]
     Active Substance: DOXYCYCLINE

REACTIONS (4)
  - Epilepsy [Unknown]
  - Seizure [Unknown]
  - Drug interaction [Unknown]
  - Product administration error [Unknown]
